FAERS Safety Report 13495964 (Version 3)
Quarter: 2017Q3

REPORT INFORMATION
  Report Type: Spontaneous
  Country: US (occurrence: US)
  Receive Date: 20170428
  Receipt Date: 20170811
  Transmission Date: 20171127
  Serious: No
  Sender: FDA-Public Use
  Company Number: US-GLAXOSMITHKLINE-US2017GSK059528

PATIENT
  Sex: Female
  Weight: 70.31 kg

DRUGS (9)
  1. GABAPENTIN. [Concomitant]
     Active Substance: GABAPENTIN
     Dosage: 300 MG, QD
  2. SERTRALINE [Concomitant]
     Active Substance: SERTRALINE HYDROCHLORIDE
     Indication: PAIN
     Dosage: 25 MG, QD
  3. GABAPENTIN. [Concomitant]
     Active Substance: GABAPENTIN
     Indication: NEURALGIA
     Dosage: 100 MG, BID
  4. ZANTAC [Concomitant]
     Active Substance: RANITIDINE HYDROCHLORIDE
     Indication: GASTRIC DISORDER
     Dosage: 300 MG, BID
  5. DOXEPIN [Concomitant]
     Active Substance: DOXEPIN
     Indication: GASTRIC DISORDER
     Dosage: 10 MG, UNK
  6. LORATADINE. [Concomitant]
     Active Substance: LORATADINE
     Dosage: 10 MG, QD
  7. MAGNESIUM [Concomitant]
     Active Substance: MAGNESIUM
     Indication: PAIN IN EXTREMITY
     Dosage: 250 MG, QD
  8. BUPROPION TABLET [Suspect]
     Active Substance: BUPROPION
     Indication: POSTURAL ORTHOSTATIC TACHYCARDIA SYNDROME
     Dosage: 150 MG, QD
     Route: 048
  9. BUPROPION TABLET [Suspect]
     Active Substance: BUPROPION
     Dosage: 300 MG, QD
     Route: 048

REACTIONS (9)
  - Abdominal distension [Unknown]
  - Vertigo [Unknown]
  - Off label use [Unknown]
  - Condition aggravated [Unknown]
  - Diarrhoea [Unknown]
  - Flatulence [Unknown]
  - Dizziness [Unknown]
  - Malaise [Unknown]
  - Abdominal pain upper [Unknown]
